FAERS Safety Report 14539459 (Version 10)
Quarter: 2019Q2

REPORT INFORMATION
  Report Type: Report from Study
  Country: FR (occurrence: FR)
  Receive Date: 20180216
  Receipt Date: 20190416
  Transmission Date: 20190711
  Serious: Yes (Hospitalization)
  Sender: FDA-Public Use
  Company Number: PHHO2017FR010158

PATIENT
  Age: 27 Year
  Sex: Female

DRUGS (13)
  1. DOLIPRANE [Concomitant]
     Active Substance: ACETAMINOPHEN
     Indication: PAIN
     Dosage: AS NECESSARY
     Route: 065
  2. PAZOPANIB [Suspect]
     Active Substance: PAZOPANIB
     Dosage: 400 MG, QD
     Route: 048
     Dates: start: 20170705, end: 20170718
  3. PAZOPANIB [Suspect]
     Active Substance: PAZOPANIB
     Dosage: 400 MG, QD
     Route: 048
     Dates: start: 20170726
  4. CHLORMADINONE [Concomitant]
     Active Substance: CHLORMADINONE
     Indication: ORAL CONTRACEPTION
     Route: 065
  5. PAZOPANIB [Suspect]
     Active Substance: PAZOPANIB
     Dosage: 600 MG, QD CYCLE 2 TO 10
     Route: 048
     Dates: start: 20170531, end: 20170704
  6. RAMIPRIL. [Concomitant]
     Active Substance: RAMIPRIL
     Indication: HYPERTENSION
     Dosage: UNK
     Route: 065
     Dates: start: 20161222
  7. ESOMEPRAZOLE. [Concomitant]
     Active Substance: ESOMEPRAZOLE MAGNESIUM
     Indication: ABDOMINAL PAIN UPPER
     Dosage: AS NECESSARY
     Route: 065
  8. PAZOPANIB [Suspect]
     Active Substance: PAZOPANIB
     Dosage: 600 MG, QD
     Route: 048
     Dates: start: 20161129
  9. AMLODIPINE [Concomitant]
     Active Substance: AMLODIPINE BESYLATE
     Indication: HYPERTENSION
     Dosage: UNK
     Route: 065
     Dates: start: 20161222
  10. PAZOPANIB [Suspect]
     Active Substance: PAZOPANIB
     Indication: DESMOID TUMOUR
     Dosage: 800 MG, QD  CYCLE 1
     Route: 048
     Dates: start: 20161006
  11. SPASFON [Concomitant]
     Indication: ABDOMINAL PAIN
     Dosage: AS NECESSARY
     Route: 065
  12. TIORFAN [Concomitant]
     Active Substance: RACECADOTRIL
     Indication: DIARRHOEA
     Dosage: AS NECESSARY
     Route: 065
  13. ZOPHREN [Concomitant]
     Active Substance: ONDANSETRON
     Indication: NAUSEA
     Dosage: AS NECESSARY
     Route: 065

REACTIONS (1)
  - Paraesthesia [Recovered/Resolved]

NARRATIVE: CASE EVENT DATE: 20170703
